FAERS Safety Report 21088463 (Version 1)
Quarter: 2022Q3

REPORT INFORMATION
  Report Type: Spontaneous
  Country: US (occurrence: None)
  Receive Date: 20220715
  Receipt Date: 20220715
  Transmission Date: 20221027
  Serious: No
  Sender: FDA-Public Use
  Company Number: None

PATIENT
  Age: 77 Year
  Sex: Female

DRUGS (1)
  1. VELTASSA [Suspect]
     Active Substance: PATIROMER
     Dosage: OTHER QUANTITY : 1 PACKET ;?FREQUENCY : EVERY OTHER WEEK;?
     Route: 048

REACTIONS (1)
  - Diarrhoea [None]
